FAERS Safety Report 25234354 (Version 1)
Quarter: 2025Q2

REPORT INFORMATION
  Report Type: Spontaneous
  Country: US (occurrence: US)
  Receive Date: 20250424
  Receipt Date: 20250424
  Transmission Date: 20250716
  Serious: Yes (Other)
  Sender: MYLAN
  Company Number: US-MYLANLABS-2025M1035414

PATIENT
  Age: 70 Year
  Sex: Male

DRUGS (5)
  1. VANCOMYCIN [Suspect]
     Active Substance: VANCOMYCIN
     Indication: Clostridium difficile infection
  2. VANCOMYCIN [Suspect]
     Active Substance: VANCOMYCIN
  3. BUDESONIDE [Suspect]
     Active Substance: BUDESONIDE
     Indication: Colitis microscopic
     Dosage: 9 MILLIGRAM, QID
  4. PREDNISONE [Suspect]
     Active Substance: PREDNISONE
     Indication: Colitis microscopic
     Dosage: 20 MILLIGRAM, BID
  5. MAGNESIUM [Concomitant]
     Active Substance: MAGNESIUM
     Indication: Diarrhoea

REACTIONS (1)
  - Drug ineffective [Unknown]
